FAERS Safety Report 5808405-9 (Version None)
Quarter: 2008Q3

REPORT INFORMATION
  Report Type: 
  Country: None (occurrence: None)
  Receive Date: 20080714
  Receipt Date: 20080708
  Transmission Date: 20090109
  Serious: Yes (Death)
  Sender: FDA-Public Use
  Company Number: PHEH2008US06042

PATIENT

DRUGS (1)
  1. ZELNORM [Suspect]

REACTIONS (1)
  - ACUTE MYOCARDIAL INFARCTION [None]
